FAERS Safety Report 7786751-X (Version None)
Quarter: 2011Q3

REPORT INFORMATION
  Report Type: 
  Country: None (occurrence: None)
  Receive Date: 20110929
  Receipt Date: 20110927
  Transmission Date: 20111222
  Serious: Yes (Other)
  Sender: FDA-Public Use
  Company Number: JP-PFIZER INC-2011229225

PATIENT
  Age: 81 Year
  Sex: Female

DRUGS (3)
  1. JUVELA NICOTINATE [Concomitant]
     Dosage: UNK
  2. LYRICA [Suspect]
     Dosage: 75 MG, 2X/DAY
     Route: 048
     Dates: start: 20110922, end: 20110923
  3. NEUROTROPIN [Concomitant]
     Dosage: UNK

REACTIONS (2)
  - FALL [None]
  - GAIT DISTURBANCE [None]
